FAERS Safety Report 9714192 (Version 1)
Quarter: 2013Q4

REPORT INFORMATION
  Report Type: Spontaneous
  Country: US (occurrence: US)
  Receive Date: 20131126
  Receipt Date: 20131126
  Transmission Date: 20140711
  Serious: No
  Sender: FDA-Public Use
  Company Number: US-GILEAD-2008-0019272

PATIENT
  Sex: Male
  Weight: 80.74 kg

DRUGS (5)
  1. LETAIRIS [Suspect]
     Indication: PULMONARY ARTERIAL HYPERTENSION
     Route: 048
     Dates: start: 20071113
  2. LASIX [Concomitant]
  3. PRILOSEC [Concomitant]
  4. COREG [Concomitant]
  5. XOPENEX [Concomitant]

REACTIONS (1)
  - Back pain [Unknown]
